FAERS Safety Report 15413700 (Version 3)
Quarter: 2019Q1

REPORT INFORMATION
  Report Type: Report from Study
  Country: CZ (occurrence: CZ)
  Receive Date: 20180921
  Receipt Date: 20190117
  Transmission Date: 20190417
  Serious: Yes (Hospitalization)
  Sender: FDA-Public Use
  Company Number: CZ-EISAI MEDICAL RESEARCH-EC-2018-045186

PATIENT
  Age: 73 Year
  Sex: Male
  Weight: 77.4 kg

DRUGS (16)
  1. RILMENIDIN [Concomitant]
     Active Substance: RILMENIDINE
  2. ANOPYRIN [Concomitant]
     Active Substance: ASPIRIN
  3. EVEROLIMUS. [Suspect]
     Active Substance: EVEROLIMUS
     Route: 048
     Dates: start: 20180920, end: 20181111
  4. EVEROLIMUS. [Suspect]
     Active Substance: EVEROLIMUS
     Route: 048
     Dates: start: 20181119
  5. FINPROS [Concomitant]
     Active Substance: FINASTERIDE
  6. NEBIVOLOL. [Concomitant]
     Active Substance: NEBIVOLOL
  7. THEOPHYLLINUM [Concomitant]
  8. PURINOL [Concomitant]
     Active Substance: ALLOPURINOL
  9. FENTANYLUM [Concomitant]
  10. EVEROLIMUS. [Suspect]
     Active Substance: EVEROLIMUS
     Indication: CLEAR CELL RENAL CELL CARCINOMA
     Route: 048
     Dates: start: 20180814, end: 20180913
  11. TRAJENTA [Concomitant]
     Active Substance: LINAGLIPTIN
  12. LENVATINIB [Suspect]
     Active Substance: LENVATINIB
     Route: 048
     Dates: start: 20180920, end: 20181111
  13. KYLOTAN [Concomitant]
  14. RHEFLUIN [Concomitant]
  15. LENVATINIB [Suspect]
     Active Substance: LENVATINIB
     Indication: CLEAR CELL RENAL CELL CARCINOMA
     Route: 048
     Dates: start: 20180814, end: 20180913
  16. LENVATINIB [Suspect]
     Active Substance: LENVATINIB
     Route: 048
     Dates: start: 20181119

REACTIONS (4)
  - Decreased appetite [Recovered/Resolved]
  - Pharyngitis [Recovered/Resolved]
  - Dehydration [Recovered/Resolved]
  - Fatigue [Recovered/Resolved]

NARRATIVE: CASE EVENT DATE: 20180913
